FAERS Safety Report 5911211-8 (Version None)
Quarter: 2008Q4

REPORT INFORMATION
  Report Type: 
  Country: None (occurrence: None)
  Receive Date: 20081007
  Receipt Date: 20080807
  Transmission Date: 20090506
  Serious: No
  Sender: FDA-Public Use
  Company Number: US-BRISTOL-MYERS SQUIBB COMPANY-14292767

PATIENT
  Age: 72 Year
  Sex: Female
  Weight: 76 kg

DRUGS (8)
  1. AVAPRO [Suspect]
     Dates: start: 20040101
  2. SYNTHROID [Concomitant]
  3. METOPROLOL TARTRATE [Concomitant]
  4. ASPIRIN [Concomitant]
  5. MULTIVITAMIN WITH MINERALS [Concomitant]
  6. XALATAN [Concomitant]
     Dosage: DROPS
     Route: 047
  7. ASCORBIC ACID [Concomitant]
  8. CALCIUM [Concomitant]

REACTIONS (1)
  - DYSGEUSIA [None]
